FAERS Safety Report 5749844-4 (Version None)
Quarter: 2008Q2

REPORT INFORMATION
  Report Type: 
  Country: None (occurrence: None)
  Receive Date: 20080527
  Receipt Date: 20080520
  Transmission Date: 20081010
  Serious: Yes (Hospitalization)
  Sender: FDA-Public Use
  Company Number: DE-ELI_LILLY_AND_COMPANY-DE200801004484

PATIENT
  Sex: Female

DRUGS (3)
  1. FORTEO [Suspect]
     Indication: OSTEOPOROSIS
     Dosage: 20 UG, DAILY (1/D)
     Route: 058
     Dates: start: 20071010
  2. NIFURANTIN B6 [Concomitant]
     Dosage: UNK, DAILY (1/D)
     Route: 065
  3. CALCILAC [Concomitant]
     Indication: OSTEOPOROSIS
     Dosage: 1000 MG, DAILY (1/D)
     Route: 048
     Dates: start: 20071010

REACTIONS (4)
  - ARRHYTHMIA [None]
  - DIZZINESS [None]
  - DYSPNOEA [None]
  - HYPERHIDROSIS [None]
